FAERS Safety Report 4554978-6 (Version None)
Quarter: 2004Q4

REPORT INFORMATION
  Report Type: 
  Country: None (occurrence: None)
  Receive Date: 20041222
  Receipt Date: 20041109
  Transmission Date: 20050328
  Serious: No
  Sender: FDA-Public Use
  Company Number: 210283

PATIENT
  Age: 56 Year
  Sex: Female

DRUGS (5)
  1. AVASTIN [Suspect]
     Indication: COLORECTAL CANCER METASTATIC
     Dosage: 300 MG, Q2W, INTRAVENOUS
     Route: 042
     Dates: start: 20040406
  2. LEUCOVORIN CALCIUM [Concomitant]
  3. FLUOROURACIL [Concomitant]
  4. PROCRIT (EOPETIN ALFA) [Concomitant]
  5. ERBITUX (CETUXIMAB) [Concomitant]

REACTIONS (2)
  - HAEMATURIA [None]
  - VAGINAL HAEMORRHAGE [None]
